FAERS Safety Report 19887215 (Version 1)
Quarter: 2021Q3

REPORT INFORMATION
  Report Type: Spontaneous
  Country: CA (occurrence: CA)
  Receive Date: 20210928
  Receipt Date: 20210928
  Transmission Date: 20211014
  Serious: Yes (Other)
  Sender: FDA-Public Use
  Company Number: CA-CELLTRION INC.-2021CA010484

PATIENT

DRUGS (5)
  1. INFLECTRA [Suspect]
     Active Substance: INFLIXIMAB-DYYB
     Dosage: 400 MG, 0,2,6 THEN EVERY 8 WEEKS
     Route: 042
     Dates: start: 20210527
  2. INFLECTRA [Suspect]
     Active Substance: INFLIXIMAB-DYYB
     Dosage: 400 MG, 0,2,6 THEN EVERY 8 WEEKS
     Route: 042
     Dates: start: 20210915
  3. INFLECTRA [Suspect]
     Active Substance: INFLIXIMAB-DYYB
     Indication: CROHN^S DISEASE
     Dosage: 400 MG, 0,2,6 THEN EVERY 8 WEEKS
     Route: 042
     Dates: start: 20201209
  4. INFLECTRA [Suspect]
     Active Substance: INFLIXIMAB-DYYB
     Dosage: 400 MG, 0,2,6 THEN EVERY 8 WEEKS
     Route: 042
     Dates: start: 20210330
  5. INFLECTRA [Suspect]
     Active Substance: INFLIXIMAB-DYYB
     Dosage: 400 MG, 0,2,6 THEN EVERY 8 WEEKS
     Route: 042
     Dates: start: 20210723

REACTIONS (3)
  - Off label use [Unknown]
  - Arthralgia [Unknown]
  - Uveitis [Unknown]

NARRATIVE: CASE EVENT DATE: 20210915
